FAERS Safety Report 21193084 (Version 1)
Quarter: 2022Q3

REPORT INFORMATION
  Report Type: Spontaneous
  Country: IT (occurrence: IT)
  Receive Date: 20220810
  Receipt Date: 20220810
  Transmission Date: 20221027
  Serious: Yes (Other)
  Sender: FDA-Public Use
  Company Number: None

PATIENT
  Age: 51 Year
  Sex: Female
  Weight: 79 kg

DRUGS (3)
  1. CARBOPLATIN [Suspect]
     Active Substance: CARBOPLATIN
     Indication: Ovarian cancer
     Dosage: UNIT DOSE: 800 MG, FREQUENCY TIME : 60 MIN, DURATION : 60 MIN
     Dates: start: 20220719, end: 20220719
  2. ONDANSETRON HYDROCHLORIDE [Concomitant]
     Active Substance: ONDANSETRON HYDROCHLORIDE
     Indication: Chemotherapy side effect prophylaxis
     Dosage: UNIT DOSE: 8 MG, FREQUENCY TIME : 10 MIN
     Dates: start: 20220719, end: 20220719
  3. DEXAMETHASONE [Concomitant]
     Active Substance: DEXAMETHASONE
     Indication: Chemotherapy side effect prophylaxis
     Dosage: DESAMETASONE FOSFATO PFIZER, UNIT DOSE: 8 MG, FREQUENCY TIME : 10 MIN
     Dates: start: 20220719, end: 20220719

REACTIONS (4)
  - Orthostatic hypotension [Recovered/Resolved]
  - Tachycardia [Recovered/Resolved]
  - Abdominal pain [Recovered/Resolved]
  - Flushing [Recovered/Resolved]

NARRATIVE: CASE EVENT DATE: 20220719
